FAERS Safety Report 5128060-3 (Version None)
Quarter: 2006Q4

REPORT INFORMATION
  Report Type: 
  Country: None (occurrence: None)
  Receive Date: 20061010
  Receipt Date: 20061002
  Transmission Date: 20070319
  Serious: Yes (Death)
  Sender: FDA-Public Use
  Company Number: HQWYE442102OCT06

PATIENT
  Age: 50 Year
  Sex: Male

DRUGS (2)
  1. CORDARONE [Suspect]
     Indication: ARRHYTHMIA
     Dosage: 2 AMPULES OVER 30 MINUTES INTRAVENOUS
     Route: 042
     Dates: start: 20060601
  2. CORDARONE [Concomitant]

REACTIONS (1)
  - CARDIOGENIC SHOCK [None]
